FAERS Safety Report 22598882 (Version 1)
Quarter: 2023Q2

REPORT INFORMATION
  Report Type: Spontaneous
  Country: US (occurrence: US)
  Receive Date: 20230614
  Receipt Date: 20230614
  Transmission Date: 20230722
  Serious: Yes (Other)
  Sender: FDA-Public Use
  Company Number: US-ROCHE-3085305

PATIENT
  Sex: Female

DRUGS (27)
  1. CAPECITABINE [Suspect]
     Active Substance: CAPECITABINE
     Indication: Colon cancer
     Dosage: TAKE WITH WATER WITHIN 30 MINS OF MEAL?1500 MG BID
     Route: 048
  2. CAPECITABINE [Suspect]
     Active Substance: CAPECITABINE
     Indication: Metastases to liver
     Dosage: TAKE WITH WATER WITHIN 30 MINS OF MEAL?1500 MG BID
     Route: 048
  3. CAPECITABINE [Suspect]
     Active Substance: CAPECITABINE
     Indication: Cholangiocarcinoma
     Dosage: TAKE WITH WATER WITHIN 30 MINS OF MEAL?1500 MG BID
     Route: 048
  4. PROCHLORPERAZINE [Concomitant]
     Active Substance: PROCHLORPERAZINE
  5. ONDANSETRON [Concomitant]
     Active Substance: ONDANSETRON
  6. LIDOCAINE\PRILOCAINE [Concomitant]
     Active Substance: LIDOCAINE\PRILOCAINE
  7. ACTOS [Concomitant]
     Active Substance: PIOGLITAZONE HYDROCHLORIDE
  8. ASPIRIN [Concomitant]
     Active Substance: ASPIRIN
  9. ATORVASTATIN [Concomitant]
     Active Substance: ATORVASTATIN
  10. BIOTIN [Concomitant]
     Active Substance: BIOTIN
  11. ASPERCREME WITH LIDOCAINE [Concomitant]
     Active Substance: LIDOCAINE
  12. CYMBALTA [Concomitant]
     Active Substance: DULOXETINE HYDROCHLORIDE
  13. CALCIUM [Concomitant]
     Active Substance: CALCIUM
  14. FLONASE ALLERGY RELIEF [Concomitant]
     Active Substance: FLUTICASONE PROPIONATE
  15. HUMALOG [Concomitant]
     Active Substance: INSULIN LISPRO
  16. LEVOTHYROXINE [Concomitant]
     Active Substance: LEVOTHYROXINE
  17. LOVENOX [Concomitant]
     Active Substance: ENOXAPARIN SODIUM
  18. LYRICA [Concomitant]
     Active Substance: PREGABALIN
  19. METFORMIN [Concomitant]
     Active Substance: METFORMIN HYDROCHLORIDE
  20. METHOCARBAMOL [Concomitant]
     Active Substance: METHOCARBAMOL
  21. MIRALAX [Concomitant]
     Active Substance: POLYETHYLENE GLYCOL 3350
  22. ESOMEPRAZOLE [Concomitant]
     Active Substance: ESOMEPRAZOLE
  23. OXYCODONE [Concomitant]
     Active Substance: OXYCODONE
  24. SIMETHICONE (DIMETHICONE) [Concomitant]
     Active Substance: DIMETHICONE
  25. TOUJEO [Concomitant]
     Active Substance: INSULIN GLARGINE
  26. TYLENOL [Concomitant]
     Active Substance: ACETAMINOPHEN
  27. VITA C [ASCORBIC ACID] [Concomitant]

REACTIONS (11)
  - Syncope [Unknown]
  - Nausea [Unknown]
  - Vomiting [Unknown]
  - Hypersensitivity [Unknown]
  - Pyrexia [Unknown]
  - Chills [Unknown]
  - Back pain [Unknown]
  - Myalgia [Unknown]
  - Dizziness [Unknown]
  - Rash [Unknown]
  - Anaphylactic reaction [Unknown]
